FAERS Safety Report 19959334 (Version 1)
Quarter: 2021Q4

REPORT INFORMATION
  Report Type: Spontaneous
  Country: US (occurrence: US)
  Receive Date: 20211015
  Receipt Date: 20211015
  Transmission Date: 20220303
  Serious: No
  Sender: FDA-Public Use
  Company Number: US-SANOFI-00809368

PATIENT

DRUGS (1)
  1. SARCLISA [Suspect]
     Active Substance: ISATUXIMAB-IRFC
     Dosage: DRUG STRUCTURE DOSAGE : UTR DRUG INTERVAL DOSAGE : UTR DRUG TREATMENT DURATION: SINCE 12OCT2021
     Route: 065
     Dates: start: 20211012

REACTIONS (1)
  - Rash [Unknown]

NARRATIVE: CASE EVENT DATE: 20211012
